FAERS Safety Report 12221052 (Version 1)
Quarter: 2016Q1

REPORT INFORMATION
  Report Type: Spontaneous
  Country: US (occurrence: US)
  Receive Date: 20160330
  Receipt Date: 20160330
  Transmission Date: 20160526
  Serious: Yes (Other)
  Sender: FDA-Public Use
  Company Number: US-LUPIN PHARMACEUTICALS INC.-E2B_00005173

PATIENT
  Age: 72 Year
  Sex: Female
  Weight: 79.45 kg

DRUGS (6)
  1. COREG [Concomitant]
     Active Substance: CARVEDILOL
     Indication: PRODUCT USED FOR UNKNOWN INDICATION
     Route: 065
  2. VALSARTAN AND HYDROCHLOROTHIAZIDE TABLETS USP 320MG/12.5MG [Suspect]
     Active Substance: HYDROCHLOROTHIAZIDE\VALSARTAN
     Indication: PERIPHERAL SWELLING
     Dosage: HALF PILL
     Route: 048
  3. VALSARTAN AND HYDROCHLOROTHIAZIDE TABLETS USP 320MG/12.5MG [Suspect]
     Active Substance: HYDROCHLOROTHIAZIDE\VALSARTAN
     Dosage: 320/12.5 MG
     Route: 048
     Dates: start: 201510
  4. CALTRATE [Concomitant]
     Active Substance: CALCIUM CARBONATE
     Indication: PRODUCT USED FOR UNKNOWN INDICATION
     Route: 065
  5. VALSARTAN AND HYDROCHLOROTHIAZIDE TABLETS USP 320MG/12.5MG [Suspect]
     Active Substance: HYDROCHLOROTHIAZIDE\VALSARTAN
     Indication: BLOOD PRESSURE ABNORMAL
     Dosage: 320/12.5 MG
     Route: 048
     Dates: start: 201509
  6. PLAVIX [Concomitant]
     Active Substance: CLOPIDOGREL BISULFATE
     Indication: PRODUCT USED FOR UNKNOWN INDICATION
     Route: 065

REACTIONS (6)
  - Wrong technique in product usage process [Unknown]
  - Dyspepsia [Not Recovered/Not Resolved]
  - Nocturia [Not Recovered/Not Resolved]
  - Product size issue [Unknown]
  - Blood pressure fluctuation [Not Recovered/Not Resolved]
  - Product difficult to swallow [Not Recovered/Not Resolved]

NARRATIVE: CASE EVENT DATE: 201509
